FAERS Safety Report 4394638-8 (Version None)
Quarter: 2004Q3

REPORT INFORMATION
  Report Type: 
  Country: None (occurrence: None)
  Receive Date: 20040706
  Receipt Date: 20040618
  Transmission Date: 20050211
  Serious: Yes (Death, Hospitalization)
  Sender: FDA-Public Use
  Company Number: 198744

PATIENT
  Age: 59 Year
  Sex: Female
  Weight: 45.3597 kg

DRUGS (8)
  1. AVONEX [Suspect]
     Indication: MULTIPLE SCLEROSIS
     Dosage: 30 MCG QW IM
     Route: 030
     Dates: start: 20040520, end: 20040520
  2. SYNTHROID [Concomitant]
  3. OXYCONTIN [Concomitant]
  4. BEXTRA [Concomitant]
  5. ANTITWITCHING MEDICATION (NOS) [Concomitant]
  6. NORTRIPTYLINE HCL [Concomitant]
  7. BACLOFEN [Concomitant]
  8. PROTONIX [Concomitant]

REACTIONS (15)
  - BRAIN DEATH [None]
  - COMA [None]
  - CONSTIPATION [None]
  - CONVULSION [None]
  - COUGH [None]
  - DEVICE FAILURE [None]
  - DRUG INEFFECTIVE [None]
  - EMBOLISM [None]
  - GASTRIC INFECTION [None]
  - INTERVERTEBRAL DISC PROTRUSION [None]
  - MULTI-ORGAN FAILURE [None]
  - MULTIPLE SCLEROSIS [None]
  - PAIN [None]
  - SPEECH DISORDER [None]
  - WEIGHT DECREASED [None]
